FAERS Safety Report 6801902-9 (Version None)
Quarter: 2010Q2

REPORT INFORMATION
  Report Type: 
  Country: None (occurrence: None)
  Receive Date: 20100629
  Receipt Date: 20100611
  Transmission Date: 20101027
  Serious: Yes (Other)
  Sender: FDA-Public Use
  Company Number: DE-PFIZER INC-2010073843

PATIENT
  Sex: Female

DRUGS (2)
  1. DEPO-CLINOVIR [Suspect]
     Dosage: UNK
  2. INTERFERON [Suspect]
     Indication: MULTIPLE SCLEROSIS

REACTIONS (1)
  - INJECTION SITE HAEMATOMA [None]
